FAERS Safety Report 5104886-7 (Version None)
Quarter: 2006Q3

REPORT INFORMATION
  Report Type: 
  Country: None (occurrence: None)
  Receive Date: 20060914
  Receipt Date: 20060901
  Transmission Date: 20061208
  Serious: Yes (Hospitalization)
  Sender: FDA-Public Use
  Company Number: 2006GB01585

PATIENT
  Sex: Male

DRUGS (1)
  1. ZOLADEX [Suspect]
     Route: 058

REACTIONS (11)
  - AGITATION [None]
  - ARTHRALGIA [None]
  - BACK PAIN [None]
  - CONSTIPATION [None]
  - DRUG HYPERSENSITIVITY [None]
  - HYPERHIDROSIS [None]
  - HYPERSENSITIVITY [None]
  - PAIN [None]
  - RASH [None]
  - TREMOR [None]
  - URINARY RETENTION [None]
